FAERS Safety Report 6793062-8 (Version None)
Quarter: 2010Q2

REPORT INFORMATION
  Report Type: 
  Country: None (occurrence: None)
  Receive Date: 20100624
  Receipt Date: 20081128
  Transmission Date: 20101027
  Serious: Yes (Other)
  Sender: FDA-Public Use
  Company Number: US-PFIZER INC-2008101059

PATIENT
  Sex: Male

DRUGS (2)
  1. GEODON [Suspect]
     Indication: AGGRESSION
     Dates: start: 20080901, end: 20081101
  2. GEODON [Suspect]
     Indication: FEELING OF RELAXATION

REACTIONS (2)
  - ANGER [None]
  - TARDIVE DYSKINESIA [None]
